FAERS Safety Report 5421980-1 (Version None)
Quarter: 2007Q3

REPORT INFORMATION
  Report Type: 
  Country: None (occurrence: None)
  Receive Date: 20070822
  Receipt Date: 20070813
  Transmission Date: 20080115
  Serious: Yes (Hospitalization)
  Sender: FDA-Public Use
  Company Number: PHEH2007US09463

PATIENT
  Age: 57 Year
  Sex: Female

DRUGS (11)
  1. SANDOSTATIN LAR [Suspect]
     Indication: CARCINOID SYNDROME
     Dosage: 300 UNITS Q21DAYS
     Route: 030
     Dates: start: 20031001, end: 20070501
  2. AMITRIPTYLINE HCL [Concomitant]
     Dosage: 50 MG, QD
     Route: 048
  3. MOBIC [Concomitant]
     Dosage: 7.5 MG, BID
     Route: 048
  4. CATAPRES                                /UNK/ [Concomitant]
     Dosage: 0.1 MG, TID
     Route: 048
  5. ZYRTEC [Concomitant]
     Dosage: 5 MG QAM
     Route: 048
  6. ZYRTEC [Concomitant]
     Dosage: 10 MG QPM
     Route: 048
  7. KLONOPIN [Concomitant]
     Dosage: 1 MG QAM
     Route: 048
  8. KLONOPIN [Concomitant]
     Dosage: 2 MG QPM
     Route: 048
  9. SINGULAIR [Concomitant]
     Dosage: 10 MG, QD
     Route: 048
  10. M.V.I. [Concomitant]
     Dosage: UNK, QD
     Route: 048
  11. TOPROL-XL [Concomitant]
     Dosage: 50 MG, QD
     Route: 048

REACTIONS (8)
  - FASCIITIS [None]
  - INJECTION SITE ABSCESS [None]
  - INJECTION SITE CELLULITIS [None]
  - INJECTION SITE IRRITATION [None]
  - INJECTION SITE NODULE [None]
  - PYREXIA [None]
  - SEPSIS [None]
  - WHITE BLOOD CELL COUNT INCREASED [None]
